FAERS Safety Report 7581582-8 (Version None)
Quarter: 2011Q2

REPORT INFORMATION
  Report Type: 
  Country: None (occurrence: None)
  Receive Date: 20110629
  Receipt Date: 20110616
  Transmission Date: 20111010
  Serious: Yes (Hospitalization)
  Sender: FDA-Public Use
  Company Number: US-CELGENEUS-AX252-10-0516

PATIENT
  Age: 73 Year
  Sex: Male

DRUGS (30)
  1. DEXTROSE [Concomitant]
     Dosage: 25 GRAM
     Route: 051
     Dates: start: 20100921, end: 20100923
  2. POLYVINYLPYROLIDONE/SODIUM HYALURONATE [Concomitant]
     Dosage: 1 PACKET
     Route: 048
     Dates: start: 20100921, end: 20100923
  3. SCOPOLAMINE [Concomitant]
     Dosage: 1 MILLIGRAM
     Route: 062
     Dates: start: 20100921, end: 20100923
  4. SODIUM PHOSPHATE [Concomitant]
     Dosage: 15 MILLIMOLE
     Route: 051
     Dates: start: 20100921, end: 20100921
  5. REGLAN [Concomitant]
     Dosage: 10 MILLIGRAM
     Route: 065
  6. CETUXIMAB [Suspect]
     Dosage: 250 MILLIGRAM/SQ. METER
     Route: 065
     Dates: start: 20100802, end: 20100914
  7. PLAVIX [Concomitant]
     Dosage: 75 MILLIGRAM
     Route: 048
     Dates: start: 20100921, end: 20100923
  8. SILVADENE [Concomitant]
     Route: 061
  9. TRIAMCINOLONE [Concomitant]
     Route: 061
  10. GUAIFENESIN [Concomitant]
     Dosage: 600 MILLIGRAM
     Route: 048
     Dates: start: 20100923, end: 20100923
  11. MAGNESIUM OXIDE [Concomitant]
     Dosage: 400 MILLIGRAM
     Route: 048
     Dates: start: 20100922, end: 20100923
  12. ABRAXANE [Suspect]
     Dosage: 60 MILLIGRAM/SQ. METER
     Route: 051
     Dates: start: 20100809, end: 20100914
  13. NEXIUM [Concomitant]
     Dosage: 40 MILLIGRAM
     Route: 048
     Dates: start: 20100921, end: 20100923
  14. FENTANYL [Concomitant]
     Dosage: 25 MICROGRAM
     Route: 062
     Dates: start: 20100923, end: 20100923
  15. OXYCODONE HCL [Concomitant]
     Dosage: 5-10MG
     Route: 048
  16. MEGESTROL ACETATE [Concomitant]
     Dosage: 40 MILLIGRAM
     Route: 048
     Dates: start: 20100921, end: 20100921
  17. POTASSIUM PHOSPHATE/SODIUM PHOSPHATE [Concomitant]
     Dosage: 500 MILLIGRAM
     Route: 048
     Dates: start: 20100922, end: 20100923
  18. RAMIPRIL [Concomitant]
     Dosage: 2.5 MILLIGRAM
     Route: 048
     Dates: start: 20100921, end: 20100923
  19. ATENOLOL [Concomitant]
     Dosage: 25 MILLIGRAM
     Route: 048
     Dates: start: 20100921, end: 20100923
  20. AMARYL [Concomitant]
     Dosage: 2 MILLIGRAM
     Route: 048
  21. BACLOFEN [Concomitant]
     Indication: HICCUPS
     Dosage: 10 MILLIGRAM
     Route: 048
  22. DOCUSATE SODIUM [Concomitant]
     Dosage: 300 MILLIGRAM
     Route: 048
     Dates: start: 20100921, end: 20100923
  23. MAGNESIUM SULFATE [Concomitant]
     Dosage: 3 GRAM
     Route: 051
     Dates: start: 20100921, end: 20100921
  24. BACTROBAN [Concomitant]
     Route: 061
  25. GLIPIZIDE [Concomitant]
     Dosage: 5 MILLIGRAM
     Route: 048
     Dates: start: 20100921, end: 20100922
  26. MAGNESIUM SULFATE [Concomitant]
     Dosage: 3 GRAM
     Route: 051
     Dates: start: 20100920, end: 20100920
  27. ENOXAPARIN [Concomitant]
     Dosage: 30 MILLIGRAM
     Route: 058
     Dates: start: 20100920, end: 20100923
  28. MEGESTROL ACETATE [Concomitant]
     Dosage: 400 MILLIGRAM
     Route: 048
     Dates: start: 20100921, end: 20100923
  29. INSULIN ASPART [Concomitant]
     Indication: BLOOD GLUCOSE
     Dosage: 2-10 UNITS
     Route: 058
     Dates: start: 20100921, end: 20100923
  30. SENNA [Concomitant]
     Dosage: 2 TABLET
     Route: 048
     Dates: start: 20100920, end: 20100923

REACTIONS (3)
  - SUPRAVENTRICULAR TACHYCARDIA [None]
  - ODYNOPHAGIA [None]
  - MUCOSAL INFLAMMATION [None]
